FAERS Safety Report 24911781 (Version 6)
Quarter: 2025Q2

REPORT INFORMATION
  Report Type: Spontaneous
  Country: US (occurrence: US)
  Receive Date: 20250131
  Receipt Date: 20250429
  Transmission Date: 20250717
  Serious: Yes (Other)
  Sender: PFIZER
  Company Number: US-PFIZER INC-PV202500011806

PATIENT
  Age: 72 Year
  Sex: Female

DRUGS (2)
  1. IBRANCE [Suspect]
     Active Substance: PALBOCICLIB
  2. LETROZOLE [Suspect]
     Active Substance: LETROZOLE

REACTIONS (6)
  - Neutropenia [Unknown]
  - Rash erythematous [Recovering/Resolving]
  - Arthralgia [Recovered/Resolved]
  - Histamine abnormal [Unknown]
  - Nausea [Unknown]
  - White blood cell count decreased [Unknown]
